FAERS Safety Report 24569074 (Version 4)
Quarter: 2025Q2

REPORT INFORMATION
  Report Type: Spontaneous
  Country: US (occurrence: US)
  Receive Date: 20241031
  Receipt Date: 20250602
  Transmission Date: 20250716
  Serious: Yes (Hospitalization)
  Sender: MERCK SHARP & DOHME LLC
  Company Number: US-009507513-2410USA012585

PATIENT
  Sex: Female
  Weight: 73.6 kg

DRUGS (14)
  1. WINREVAIR [Suspect]
     Active Substance: SOTATERCEPT-CSRK
     Indication: Pulmonary arterial hypertension
     Dosage: DOSE DESCRIPTION : 0.4 MILLILITER, Q3W?DAILY DOSE : 0.019 MILLILITER?REGIMEN DOSE : 0.4  MILLILITER
     Route: 058
     Dates: start: 2024, end: 202501
  2. WINREVAIR [Suspect]
     Active Substance: SOTATERCEPT-CSRK
  3. WINREVAIR [Suspect]
     Active Substance: SOTATERCEPT-CSRK
  4. WINREVAIR [Suspect]
     Active Substance: SOTATERCEPT-CSRK
  5. REMODULIN [Suspect]
     Active Substance: TREPROSTINIL
     Indication: Pulmonary arterial hypertension
     Route: 058
     Dates: start: 202311
  6. OPSUMIT [Concomitant]
     Active Substance: MACITENTAN
  7. CAPECITABINE [Concomitant]
     Active Substance: CAPECITABINE
     Indication: Colorectal adenocarcinoma
     Dates: start: 2024
  8. OXYGEN [Concomitant]
     Active Substance: OXYGEN
  9. TRIAMCINOLONE ACETONIDE [Concomitant]
     Active Substance: TRIAMCINOLONE ACETONIDE
  10. LIDOCAINE\PRILOCAINE [Concomitant]
     Active Substance: LIDOCAINE\PRILOCAINE
  11. SILDENAFIL CITRATE [Concomitant]
     Active Substance: SILDENAFIL CITRATE
  12. ORENITRAM [Concomitant]
     Active Substance: TREPROSTINIL
     Dosage: DOSE DESCRIPTION : 10 MILLIGRAM, TID?DAILY DOSE : 30 MILLIGRAM
     Route: 048
  13. OXALIPLATIN [Concomitant]
     Active Substance: OXALIPLATIN
     Indication: Colorectal adenocarcinoma
     Dates: start: 2024
  14. ASPIRIN [Suspect]
     Active Substance: ASPIRIN

REACTIONS (4)
  - Gastrointestinal haemorrhage [Recovered/Resolved]
  - General physical health deterioration [Unknown]
  - Blood pressure fluctuation [Unknown]
  - Oxygen saturation abnormal [Unknown]

NARRATIVE: CASE EVENT DATE: 20240101
